FAERS Safety Report 4416553-3 (Version None)
Quarter: 2004Q3

REPORT INFORMATION
  Report Type: 
  Country: None (occurrence: None)
  Receive Date: 20040802
  Receipt Date: 20040714
  Transmission Date: 20050211
  Serious: Yes (Hospitalization)
  Sender: FDA-Public Use
  Company Number: B0340557A

PATIENT
  Age: 23 Year
  Sex: Male
  Weight: 53.8873 kg

DRUGS (1)
  1. MEPRON [Suspect]
     Indication: MALARIA
     Dosage: 750 MG THREE TIMES PER DAY
     Route: 048
     Dates: start: 19910124

REACTIONS (7)
  - ABNORMAL BEHAVIOUR [None]
  - AGITATION [None]
  - ANXIETY [None]
  - DELUSION [None]
  - RESTLESSNESS [None]
  - SUDDEN DEATH [None]
  - SUICIDAL IDEATION [None]
